FAERS Safety Report 10695938 (Version 2)
Quarter: 2015Q1

REPORT INFORMATION
  Report Type: Spontaneous
  Country: US (occurrence: US)
  Receive Date: 20150107
  Receipt Date: 20150220
  Transmission Date: 20150721
  Serious: No
  Sender: FDA-Public Use
  Company Number: US-PFIZER INC-2015004964

PATIENT
  Age: 47 Year
  Sex: Female

DRUGS (17)
  1. XANAX [Suspect]
     Active Substance: ALPRAZOLAM
     Dosage: UNK
  2. CLEOCIN [Suspect]
     Active Substance: CLINDAMYCIN PHOSPHATE
     Dosage: UNK
  3. PROTONIX [Suspect]
     Active Substance: PANTOPRAZOLE SODIUM
     Dosage: UNK
  4. CEFTIN [Suspect]
     Active Substance: CEFUROXIME AXETIL
     Dosage: UNK
  5. LEVAQUIN [Suspect]
     Active Substance: LEVOFLOXACIN
     Dosage: UNK
  6. IODINE [Suspect]
     Active Substance: IODINE
     Dosage: UNK
  7. NIASPAN [Suspect]
     Active Substance: NIACIN
     Dosage: UNK
  8. ASPIRIN. [Suspect]
     Active Substance: ASPIRIN
     Dosage: UNK
  9. DOXYCYCLINE HYCLATE. [Suspect]
     Active Substance: DOXYCYCLINE HYCLATE
     Dosage: UNK
  10. KETEK [Suspect]
     Active Substance: TELITHROMYCIN
     Dosage: UNK
  11. CODEINE [Suspect]
     Active Substance: CODEINE
     Dosage: UNK
  12. BACTRIM [Suspect]
     Active Substance: SULFAMETHOXAZOLE\TRIMETHOPRIM
     Dosage: UNK
  13. COMPAZINE [Suspect]
     Active Substance: PROCHLORPERAZINE MALEATE
     Dosage: UNK
  14. SIMCOR [Suspect]
     Active Substance: NIACIN\SIMVASTATIN
     Dosage: UNK
  15. OMNICEF [Suspect]
     Active Substance: CEFDINIR
     Dosage: UNK
  16. MACRODANTIN [Suspect]
     Active Substance: NITROFURANTOIN
     Dosage: UNK
  17. COLYTE [Suspect]
     Active Substance: POLYETHYLENE GLYCOL 3350\POTASSIUM CHLORIDE\SODIUM BICARBONATE\SODIUM CHLORIDE\SODIUM SULFATE ANHYDROUS
     Dosage: UNK

REACTIONS (1)
  - Drug hypersensitivity [Unknown]
